FAERS Safety Report 9050518 (Version 1)
Quarter: 2013Q1

REPORT INFORMATION
  Report Type: Spontaneous
  Country: CH (occurrence: CH)
  Receive Date: 20130205
  Receipt Date: 20130205
  Transmission Date: 20140127
  Serious: Yes (Hospitalization)
  Sender: FDA-Public Use
  Company Number: PHHY2013CH009499

PATIENT
  Age: 58 Year
  Sex: Male

DRUGS (9)
  1. RIMACTANE [Suspect]
     Indication: PULMONARY TUBERCULOSIS
     Dosage: 600 MG, QD
     Route: 048
     Dates: start: 201211
  2. IMUREK [Suspect]
     Indication: POLYARTERITIS NODOSA
     Dosage: 150 MG, UNK
     Route: 048
     Dates: start: 20121206, end: 20121220
  3. IMUREK [Suspect]
     Dosage: 150 MG, UNK
     Route: 048
     Dates: start: 20130111, end: 20130112
  4. PREDNISON [Suspect]
     Indication: POLYARTERITIS NODOSA
     Dosage: 40 MG, UNK
     Route: 048
     Dates: start: 201211
  5. TRAMAL [Suspect]
     Indication: SCIATICA
     Dosage: 150 MG, Q12H
     Route: 048
     Dates: start: 201208
  6. NEXUM [Concomitant]
     Dosage: 40 MG, QD
     Route: 048
     Dates: start: 201211
  7. CALCIMAGON D3 [Concomitant]
     Dosage: 500 MG, BID
     Route: 048
     Dates: start: 201211
  8. ATACAND [Concomitant]
     Dosage: 16 MG, QD
     Route: 048
     Dates: start: 2009
  9. SERETIDE [Concomitant]
     Dosage: 1 DF, BID LONGTERM
     Route: 055

REACTIONS (1)
  - Pancreatitis acute [Recovered/Resolved]
